FAERS Safety Report 25617295 (Version 3)
Quarter: 2025Q3

REPORT INFORMATION
  Report Type: Spontaneous
  Country: CN (occurrence: CN)
  Receive Date: 20250729
  Receipt Date: 20250828
  Transmission Date: 20251020
  Serious: Yes (Other)
  Sender: INFORLIFE
  Company Number: CN-INFO-20250179

PATIENT
  Age: 34 Year
  Sex: Female
  Weight: 49.1 kg

DRUGS (17)
  1. METRONIDAZOLE [Interacting]
     Active Substance: METRONIDAZOLE
     Indication: Antibiotic prophylaxis
     Dosage: ALSO REPORTED AS 1000MG PER DAY
     Route: 042
     Dates: start: 20230802, end: 20230809
  2. METRONIDAZOLE [Interacting]
     Active Substance: METRONIDAZOLE
     Indication: Antibiotic prophylaxis
     Dosage: SWITCHED FROM IV TO ORAL
     Route: 048
     Dates: start: 20230810, end: 20230814
  3. METRONIDAZOLE [Interacting]
     Active Substance: METRONIDAZOLE
     Indication: Antibiotic prophylaxis
     Dates: start: 20230801, end: 20230801
  4. TACROLIMUS [Interacting]
     Active Substance: TACROLIMUS
     Indication: Immunosuppressant drug therapy
     Dosage: STARTING DOSE
     Route: 048
     Dates: start: 20230613, end: 20230713
  5. TACROLIMUS [Interacting]
     Active Substance: TACROLIMUS
     Indication: Immunosuppressant drug therapy
     Dosage: SWITCH OF THERAPY
     Route: 048
     Dates: start: 20230713, end: 20230821
  6. TACROLIMUS [Interacting]
     Active Substance: TACROLIMUS
     Indication: Immunosuppressant drug therapy
     Dosage: 3.5 MG QD AT 9:00 A.M., WN DAILY DOSE 0.076
     Route: 048
     Dates: start: 20230821
  7. MYCOPHENOLIC ACID [Concomitant]
     Active Substance: MYCOPHENOLIC ACID
     Indication: Immunosuppressant drug therapy
     Dosage: STARTING DOSE
     Route: 048
     Dates: start: 20230613, end: 20230713
  8. MYCOPHENOLIC ACID [Concomitant]
     Active Substance: MYCOPHENOLIC ACID
     Indication: Immunosuppressant drug therapy
     Dosage: SWITCH OF THERAPY
     Route: 048
     Dates: start: 20230713, end: 20230727
  9. MYCOPHENOLIC ACID [Concomitant]
     Active Substance: MYCOPHENOLIC ACID
     Indication: Immunosuppressant drug therapy
     Route: 048
     Dates: start: 20230803, end: 20230821
  10. MYCOPHENOLIC ACID [Concomitant]
     Active Substance: MYCOPHENOLIC ACID
     Indication: Immunosuppressant drug therapy
     Route: 048
     Dates: start: 20230803
  11. MYCOPHENOLIC ACID [Concomitant]
     Active Substance: MYCOPHENOLIC ACID
     Indication: Immunosuppressant drug therapy
     Route: 048
     Dates: start: 20230727, end: 20230803
  12. PREDNISONE [Concomitant]
     Active Substance: PREDNISONE
     Indication: Immunosuppressant drug therapy
     Route: 048
     Dates: start: 20230613, end: 20230821
  13. PREDNISONE [Concomitant]
     Active Substance: PREDNISONE
     Indication: Immunosuppressant drug therapy
     Route: 048
     Dates: start: 20230821
  14. AMOXICILLIN [Concomitant]
     Active Substance: AMOXICILLIN
     Route: 048
     Dates: start: 20230801, end: 20230801
  15. AMOXICILLIN [Concomitant]
     Active Substance: AMOXICILLIN
     Dates: start: 20230810, end: 20230814
  16. CLINDAMYCIN [Concomitant]
     Active Substance: CLINDAMYCIN
     Dates: start: 20230802, end: 20230804
  17. VITAMIN C [Concomitant]
     Active Substance: ASCORBIC ACID
     Dates: start: 20230802, end: 20230804

REACTIONS (2)
  - Drug interaction [Recovered/Resolved]
  - Drug level increased [Recovered/Resolved]
